FAERS Safety Report 5605209-7 (Version None)
Quarter: 2008Q1

REPORT INFORMATION
  Report Type: 
  Country: None (occurrence: None)
  Receive Date: 20080128
  Receipt Date: 20080117
  Transmission Date: 20080703
  Serious: Yes (Other)
  Sender: FDA-Public Use
  Company Number: US-PFIZER INC-2008006073

PATIENT
  Sex: Female
  Weight: 92.5 kg

DRUGS (13)
  1. GEODON [Suspect]
     Indication: BIPOLAR I DISORDER
  2. TEGRETOL [Concomitant]
  3. KLONOPIN [Concomitant]
  4. TOPAMAX [Concomitant]
  5. ACTOS [Concomitant]
  6. AVAPRO [Concomitant]
  7. PREVACID [Concomitant]
  8. SYNTHROID [Concomitant]
  9. RELAFEN [Concomitant]
  10. STROVITE [Concomitant]
  11. DITROPAN XL [Concomitant]
  12. ALL OTHER THERAPEUTIC PRODUCTS [Concomitant]
  13. VITAMIN B-12 [Concomitant]

REACTIONS (9)
  - ABNORMAL BEHAVIOUR [None]
  - AMNESIA [None]
  - ANXIETY [None]
  - DEPRESSION [None]
  - DISTURBANCE IN ATTENTION [None]
  - IRRITABILITY [None]
  - OBSESSIVE THOUGHTS [None]
  - VIOLENCE-RELATED SYMPTOM [None]
  - WEIGHT DECREASED [None]
